FAERS Safety Report 5258251-2 (Version None)
Quarter: 2007Q1

REPORT INFORMATION
  Report Type: 
  Country: None (occurrence: None)
  Receive Date: 20070305
  Receipt Date: 20070228
  Transmission Date: 20070707
  Serious: Yes (Death, Life-Threatening)
  Sender: FDA-Public Use
  Company Number: 236945

PATIENT
  Age: 80 Year
  Sex: Female

DRUGS (4)
  1. GRTPA (ALTEPLASE) PWDR + SOLVENT, INFUSION SOLN [Suspect]
     Indication: CEREBRAL INFARCTION
     Dosage: 30.1 MG, SINGLE, INTRAVENOUS
     Route: 042
     Dates: start: 20070211, end: 20070211
  2. WARFARIN SODIUM [Concomitant]
  3. RADICUT [Concomitant]
  4. ZANTAC [Concomitant]

REACTIONS (7)
  - BRAIN OEDEMA [None]
  - HAEMATOCRIT DECREASED [None]
  - HAEMOGLOBIN DECREASED [None]
  - INTERNATIONAL NORMALISED RATIO DECREASED [None]
  - NO THERAPEUTIC RESPONSE [None]
  - PLATELET COUNT DECREASED [None]
  - RED BLOOD CELL COUNT DECREASED [None]
